FAERS Safety Report 5448602-8 (Version None)
Quarter: 2007Q3

REPORT INFORMATION
  Report Type: 
  Country: None (occurrence: None)
  Receive Date: 20070911
  Receipt Date: 20070831
  Transmission Date: 20080115
  Serious: Yes (Hospitalization, Other)
  Sender: FDA-Public Use
  Company Number: US-JNJFOC-20070800973

PATIENT
  Sex: Male
  Weight: 86.64 kg

DRUGS (8)
  1. REMICADE [Suspect]
     Route: 042
  2. REMICADE [Suspect]
     Route: 042
  3. REMICADE [Suspect]
     Route: 042
  4. REMICADE [Suspect]
     Indication: ANKYLOSING SPONDYLITIS
     Route: 042
  5. ECOTRIN [Concomitant]
  6. PLAVIX [Concomitant]
  7. CLARITIN [Concomitant]
     Indication: PREMEDICATION
  8. ZANTAC 150 [Concomitant]
     Indication: PREMEDICATION

REACTIONS (3)
  - INFUSION RELATED REACTION [None]
  - LOSS OF CONSCIOUSNESS [None]
  - ULCER HAEMORRHAGE [None]
